FAERS Safety Report 25156563 (Version 3)
Quarter: 2025Q3

REPORT INFORMATION
  Report Type: Spontaneous
  Country: US (occurrence: US)
  Receive Date: 20250403
  Receipt Date: 20250805
  Transmission Date: 20251021
  Serious: Yes (Hospitalization)
  Sender: SANOFI AVENTIS
  Company Number: US-SA-2025SA096393

PATIENT
  Age: 74 Year
  Sex: Male
  Weight: 132.73 kg

DRUGS (36)
  1. DUPIXENT [Suspect]
     Active Substance: DUPILUMAB
     Indication: Asthma
     Route: 058
     Dates: start: 202502, end: 202502
  2. DUPIXENT [Suspect]
     Active Substance: DUPILUMAB
     Dosage: 300 MG, QOW
     Route: 058
     Dates: start: 2025, end: 2025
  3. LINZESS [Concomitant]
     Active Substance: LINACLOTIDE
  4. MAGNESIUM [Concomitant]
     Active Substance: MAGNESIUM
  5. VITAMIN D3 [Concomitant]
     Active Substance: CHOLECALCIFEROL
  6. VITAMIN B12 [Concomitant]
     Active Substance: CYANOCOBALAMIN
  7. NITROGLYCERIN [Concomitant]
     Active Substance: NITROGLYCERIN
     Route: 060
  8. MONTELUKAST SODIUM [Concomitant]
     Active Substance: MONTELUKAST SODIUM
  9. METOPROLOL SUCCINATE [Concomitant]
     Active Substance: METOPROLOL SUCCINATE
  10. ALBUTEROL SULFATE [Concomitant]
     Active Substance: ALBUTEROL SULFATE
  11. LEVALBUTEROL HYDROCHLORIDE [Concomitant]
     Active Substance: LEVALBUTEROL HYDROCHLORIDE
  12. INCRUSE ELLIPTA [Concomitant]
     Active Substance: UMECLIDINIUM BROMIDE
  13. EZETIMIBE [Concomitant]
     Active Substance: EZETIMIBE
  14. DOFETILIDE [Concomitant]
     Active Substance: DOFETILIDE
  15. COMBIGAN [Concomitant]
     Active Substance: BRIMONIDINE TARTRATE\TIMOLOL MALEATE
  16. CHOLECALCIFEROL [Concomitant]
     Active Substance: CHOLECALCIFEROL
  17. ELIQUIS [Concomitant]
     Active Substance: APIXABAN
  18. AMLODIPINE BESYLATE [Concomitant]
     Active Substance: AMLODIPINE BESYLATE
  19. BIMATOPROST [Concomitant]
     Active Substance: BIMATOPROST
  20. ALPRAZOLAM [Concomitant]
     Active Substance: ALPRAZOLAM
  21. MINERALS\VITAMINS [Concomitant]
     Active Substance: MINERALS\VITAMINS
  22. BUDESONIDE [Concomitant]
     Active Substance: BUDESONIDE
  23. TAMSULOSIN HYDROCHLORIDE [Concomitant]
     Active Substance: TAMSULOSIN HYDROCHLORIDE
  24. NITROSTAT [Concomitant]
     Active Substance: NITROGLYCERIN
     Route: 060
  25. NALOXONE HCL [Concomitant]
     Active Substance: NALOXONE HYDROCHLORIDE
  26. VITAMINS NOS [Concomitant]
     Active Substance: VITAMINS
  27. ISOSORBIDE MONONITRATE [Concomitant]
     Active Substance: ISOSORBIDE MONONITRATE
  28. FUROSEMIDE [Concomitant]
     Active Substance: FUROSEMIDE
  29. FAMOTIDINE [Concomitant]
     Active Substance: FAMOTIDINE
  30. ZETIA [Concomitant]
     Active Substance: EZETIMIBE
  31. BISACODYL [Concomitant]
     Active Substance: BISACODYL
  32. ACETAMINOPHEN [Concomitant]
     Active Substance: ACETAMINOPHEN
  33. FLONASE ALLERGY RELIEF [Concomitant]
     Active Substance: FLUTICASONE PROPIONATE
  34. TRELEGY ELLIPTA [Concomitant]
     Active Substance: FLUTICASONE FUROATE\UMECLIDINIUM BROMIDE\VILANTEROL TRIFENATATE
  35. DOFETILIDE [Concomitant]
     Active Substance: DOFETILIDE
  36. ELIQUIS [Concomitant]
     Active Substance: APIXABAN

REACTIONS (5)
  - Asthma [Not Recovered/Not Resolved]
  - Cough [Not Recovered/Not Resolved]
  - Sleep disorder [Not Recovered/Not Resolved]
  - Arthritis [Unknown]
  - Arthralgia [Unknown]

NARRATIVE: CASE EVENT DATE: 20250101
